FAERS Safety Report 9357974 (Version 1)
Quarter: 2013Q2

REPORT INFORMATION
  Report Type: Spontaneous
  Country: US (occurrence: None)
  Receive Date: 20130619
  Receipt Date: 20130619
  Transmission Date: 20140414
  Serious: Yes (Other)
  Sender: FDA-Public Use
  Company Number: None

PATIENT
  Sex: Female
  Weight: 62.3 kg

DRUGS (1)
  1. METFORMIN [Suspect]
     Dates: start: 20130210

REACTIONS (4)
  - Nausea [None]
  - No therapeutic response [None]
  - Blood glucose increased [None]
  - Product substitution issue [None]
